FAERS Safety Report 23477053 (Version 1)
Quarter: 2024Q1

REPORT INFORMATION
  Report Type: Report from Study
  Country: US (occurrence: US)
  Receive Date: 20240204
  Receipt Date: 20240204
  Transmission Date: 20240410
  Serious: No
  Sender: FDA-Public Use
  Company Number: US-EXELIXIS-CABO-23065104

PATIENT
  Sex: Male

DRUGS (28)
  1. COMETRIQ [Suspect]
     Active Substance: CABOZANTINIB S-MALATE
     Indication: Thyroid cancer
     Dosage: 20 MG
  2. CALCITRIOL [Concomitant]
     Active Substance: CALCITRIOL
  3. CALCIUM CARBONATE [Concomitant]
     Active Substance: CALCIUM CARBONATE
  4. CLINDAMYCIN [Concomitant]
     Active Substance: CLINDAMYCIN
  5. CLONIDINE [Concomitant]
     Active Substance: CLONIDINE
  6. DIPHENHYDRAMINE [Concomitant]
     Active Substance: DIPHENHYDRAMINE
  7. DULOXETINE [Concomitant]
     Active Substance: DULOXETINE
  8. ERGOCALCIFEROL [Concomitant]
     Active Substance: ERGOCALCIFEROL
  9. ESCITALOPRAM [Concomitant]
     Active Substance: ESCITALOPRAM OXALATE
  10. GABAPENTIN [Concomitant]
     Active Substance: GABAPENTIN
  11. HUMALOG [Concomitant]
     Active Substance: INSULIN LISPRO
  12. HYDROMORPHONE [Concomitant]
     Active Substance: HYDROMORPHONE
  13. LEVEMIR [Concomitant]
     Active Substance: INSULIN DETEMIR
  14. DIPHENHYDRAMINE HYDROCHLORIDE\LIDOCAINE HYDROCHLORIDE\NYSTATIN [Concomitant]
     Active Substance: DIPHENHYDRAMINE HYDROCHLORIDE\LIDOCAINE HYDROCHLORIDE\NYSTATIN
  15. Methyl [Concomitant]
  16. SALICYLATES NOS [Concomitant]
     Active Substance: UNSPECIFIED INGREDIENT
  17. MENTHOL [Concomitant]
     Active Substance: MENTHOL
  18. METOPROLOL TARTRATE [Concomitant]
     Active Substance: METOPROLOL TARTRATE
  19. VITAMINS [Concomitant]
     Active Substance: VITAMINS
  20. NALOXONE [Concomitant]
     Active Substance: NALOXONE
  21. NYSTATIN [Concomitant]
     Active Substance: NYSTATIN
  22. OLMESARTAN [Concomitant]
     Active Substance: OLMESARTAN
  23. PREDNISONE [Concomitant]
     Active Substance: PREDNISONE
  24. SENNA [Concomitant]
     Active Substance: SENNA LEAF\SENNOSIDES\SENNOSIDES A AND B
  25. TIROSINT [Concomitant]
     Active Substance: LEVOTHYROXINE SODIUM
  26. TRAZODONE [Concomitant]
     Active Substance: TRAZODONE HYDROCHLORIDE
  27. ZINC SULFATE [Concomitant]
     Active Substance: ZINC SULFATE
  28. ZOLPIDEM [Concomitant]
     Active Substance: ZOLPIDEM TARTRATE

REACTIONS (2)
  - Adverse drug reaction [Unknown]
  - Palmar-plantar erythrodysaesthesia syndrome [Unknown]
